FAERS Safety Report 5389166-7 (Version None)
Quarter: 2007Q3

REPORT INFORMATION
  Report Type: 
  Country: None (occurrence: None)
  Receive Date: 20070717
  Receipt Date: 20070716
  Transmission Date: 20080115
  Serious: Yes (Other)
  Sender: FDA-Public Use
  Company Number: TR-BRISTOL-MYERS SQUIBB COMPANY-13846845

PATIENT
  Age: 50 Year
  Sex: Male

DRUGS (2)
  1. AMPHOTERICIN B [Suspect]
     Indication: SINUSITIS FUNGAL
  2. AMPHOTERICIN B [Suspect]
     Indication: SINUSITIS FUNGAL

REACTIONS (2)
  - CYANOSIS [None]
  - RAYNAUD'S PHENOMENON [None]
